FAERS Safety Report 4635050-3 (Version None)
Quarter: 2005Q2

REPORT INFORMATION
  Report Type: 
  Country: None (occurrence: None)
  Receive Date: 20050414
  Receipt Date: 20040511
  Transmission Date: 20051028
  Serious: Yes (Other)
  Sender: FDA-Public Use
  Company Number: US-ROCHE-367530

PATIENT
  Age: 56 Year
  Sex: Female
  Weight: 135.6 kg

DRUGS (6)
  1. XENICAL [Suspect]
     Indication: DRUG USE FOR UNKNOWN INDICATION
     Route: 048
     Dates: start: 20020215, end: 20030715
  2. XENICAL [Suspect]
     Route: 048
  3. GLUCOPHAGE [Concomitant]
     Indication: INSULIN-REQUIRING TYPE II DIABETES MELLITUS
     Dosage: DRUG NAME REPORTED AS GLUCOPHAGE XR. DRUG WAS DISCONTINUED AND THEN RESTARTED AFTER THE ADVERSE EVE+
     Route: 048
  4. GLUCOTROL [Concomitant]
     Indication: INSULIN-REQUIRING TYPE II DIABETES MELLITUS
     Dosage: DRUG NAME REPORTED AS GLUCOTROL XL. DRUG WAS DISCONTINUED AND THEN RESTARTED AFTER THE ADVERSE EVEN+
     Route: 048
  5. INSULIN [Concomitant]
     Dosage: DRUG WAS DISCONTINUED AND THEN RESTARTED AFTER THE ADVERSE EVENT.
     Route: 058
  6. LEVOXYL [Concomitant]
     Indication: HYPOTHYROIDISM
     Route: 048

REACTIONS (2)
  - DIABETES MELLITUS INADEQUATE CONTROL [None]
  - HYPOTHYROIDISM [None]
